FAERS Safety Report 4545833-6 (Version None)
Quarter: 2005Q1

REPORT INFORMATION
  Report Type: 
  Country: None (occurrence: None)
  Receive Date: 20050105
  Receipt Date: 20050105
  Transmission Date: 20050727
  Serious: Yes (Other)
  Sender: FDA-Public Use
  Company Number: None

PATIENT
  Age: 52 Year
  Sex: Female
  Weight: 61.2356 kg

DRUGS (2)
  1. EFFEXOR [Suspect]
     Indication: HOT FLUSH
     Dosage: 1 TABLET PER DAY ORAL
     Route: 048
     Dates: start: 20011129, end: 20041231
  2. EFFEXOR [Suspect]
     Indication: MENOPAUSE
     Dosage: 1 TABLET PER DAY ORAL
     Route: 048
     Dates: start: 20011129, end: 20041231

REACTIONS (9)
  - BLOOD PRESSURE INCREASED [None]
  - DRUG INEFFECTIVE [None]
  - FATIGUE [None]
  - HEADACHE [None]
  - INFLUENZA [None]
  - INSOMNIA [None]
  - NAUSEA [None]
  - SOMNOLENCE [None]
  - VOMITING [None]
